FAERS Safety Report 9056137 (Version 6)
Quarter: 2014Q1

REPORT INFORMATION
  Report Type: Spontaneous
  Country: GR (occurrence: GR)
  Receive Date: 20130205
  Receipt Date: 20140326
  Transmission Date: 20141002
  Serious: Yes (Hospitalization)
  Sender: FDA-Public Use
  Company Number: PHHY2013GR008942

PATIENT
  Age: 73 Year
  Sex: Female

DRUGS (3)
  1. GLIVEC [Suspect]
     Indication: CHRONIC MYELOID LEUKAEMIA
     Dosage: 300 MG, DAILY
     Dates: start: 2009
  2. PROLIA [Suspect]
     Indication: OSTEOPOROSIS
     Dosage: 60 MG, EVERY 6 MONTH
     Route: 058
     Dates: start: 20120717
  3. FOSAMAX [Suspect]
     Indication: OSTEOPOROSIS
     Dosage: UNK UKN, UNK

REACTIONS (7)
  - Osteonecrosis of jaw [Unknown]
  - Concomitant disease progression [Unknown]
  - Swelling [Unknown]
  - Pain [Unknown]
  - Purulence [Unknown]
  - Osteonecrosis [Unknown]
  - Excessive granulation tissue [Unknown]
